FAERS Safety Report 4836521-7 (Version None)
Quarter: 2005Q4

REPORT INFORMATION
  Report Type: 
  Country: None (occurrence: None)
  Receive Date: 20051118
  Receipt Date: 20051108
  Transmission Date: 20060501
  Serious: Yes (Life-Threatening)
  Sender: FDA-Public Use
  Company Number: 2005154087

PATIENT
  Age: 24 Year
  Sex: Female

DRUGS (1)
  1. DEPO-PROVERA [Suspect]
     Indication: CONTRACEPTION
     Dosage: 150 MG (150 MG) INTRAMUSCULAR
     Route: 030
     Dates: start: 20051025, end: 20051025

REACTIONS (5)
  - DYSPNOEA [None]
  - HYPERSENSITIVITY [None]
  - PARAESTHESIA [None]
  - RHINORRHOEA [None]
  - TACHYCARDIA [None]
